FAERS Safety Report 25931970 (Version 1)
Quarter: 2025Q4

REPORT INFORMATION
  Report Type: Report from Study
  Country: US (occurrence: US)
  Receive Date: 20251016
  Receipt Date: 20251016
  Transmission Date: 20260118
  Serious: Yes (Other)
  Sender: MALLINCKRODT
  Company Number: US-MALLINCKRODT-MNK202506246

PATIENT
  Sex: Female

DRUGS (2)
  1. CORTICOTROPIN [Suspect]
     Active Substance: CORTICOTROPIN
     Indication: Nephrotic syndrome
     Route: 058
  2. FLORINEF ACETATE [Concomitant]
     Active Substance: FLUDROCORTISONE ACETATE

REACTIONS (6)
  - Hypotension [Not Recovered/Not Resolved]
  - Fall [Not Recovered/Not Resolved]
  - Confusional state [Unknown]
  - Abnormal dreams [Unknown]
  - Weight decreased [Unknown]
  - Lethargy [Not Recovered/Not Resolved]
